FAERS Safety Report 7900590-8 (Version None)
Quarter: 2011Q4

REPORT INFORMATION
  Report Type: 
  Country: None (occurrence: None)
  Receive Date: 20111108
  Receipt Date: 20111031
  Transmission Date: 20120403
  Serious: Yes (Hospitalization)
  Sender: FDA-Public Use
  Company Number: AU-US-EMD SERONO, INC.-7084800

PATIENT
  Sex: Female

DRUGS (5)
  1. ANTIBIOTICS [Concomitant]
  2. REBIF [Suspect]
     Indication: PRODUCT USED FOR UNKNOWN INDICATION
     Route: 058
  3. INNER HEALTH PLUS [Concomitant]
  4. CYMBALTA [Suspect]
     Indication: MUSCLE SPASMS
  5. CRANBERRY TABLETS [Concomitant]

REACTIONS (2)
  - FUNCTIONAL GASTROINTESTINAL DISORDER [None]
  - DIARRHOEA [None]
